FAERS Safety Report 6127799-0 (Version None)
Quarter: 2009Q1

REPORT INFORMATION
  Report Type: 
  Country: None (occurrence: None)
  Receive Date: 20090323
  Receipt Date: 20090311
  Transmission Date: 20090719
  Serious: Yes (Hospitalization)
  Sender: FDA-Public Use
  Company Number: US-AVENTIS-200912015US

PATIENT
  Sex: Female
  Weight: 65.91 kg

DRUGS (13)
  1. LOVENOX [Suspect]
     Indication: THROMBOSIS PROPHYLAXIS
  2. LOVENOX [Suspect]
     Indication: ANTIPHOSPHOLIPID SYNDROME
  3. AMBIEN [Concomitant]
     Indication: INSOMNIA
     Dosage: DOSE: UNK
  4. NORVASC [Concomitant]
     Dosage: DOSE: UNK
  5. CLONAZEPAM [Concomitant]
     Indication: NERVOUSNESS
     Dosage: DOSE: UNK
  6. OXYCODONE HCL [Concomitant]
     Indication: PAIN
     Dosage: DOSE: UNK
  7. PLAQUENIL                          /00072601/ [Concomitant]
     Dosage: DOSE: UNK
  8. VIT D [Concomitant]
     Dosage: DOSE: UNK
  9. PREDNISONE [Concomitant]
     Dosage: DOSE: UNK
  10. MAGNESIUM SULFATE [Concomitant]
     Dosage: DOSE: UNK
  11. ALLEGRA-D 12 HOUR [Concomitant]
     Indication: MULTIPLE ALLERGIES
     Dosage: DOSE: UNK
  12. ALLEGRA-D 12 HOUR [Concomitant]
     Indication: ANGIOEDEMA
     Dosage: DOSE: UNK
  13. UNKNOWN DRUG [Concomitant]
     Dosage: DOSE: UNK

REACTIONS (3)
  - ABSCESS LIMB [None]
  - BONE DISORDER [None]
  - PAIN [None]
